FAERS Safety Report 8555133-5 (Version None)
Quarter: 2012Q3

REPORT INFORMATION
  Report Type: 
  Country: None (occurrence: None)
  Receive Date: 20120731
  Receipt Date: 20120724
  Transmission Date: 20120928
  Serious: Yes (Hospitalization, Other)
  Sender: FDA-Public Use
  Company Number: FR-PFIZER INC-2012166447

PATIENT
  Age: 65 Year
  Sex: Female

DRUGS (8)
  1. ACUPAN [Suspect]
     Dosage: UNK
  2. DACARBAZINE [Suspect]
     Indication: METASTATIC MALIGNANT MELANOMA
     Dosage: UNK
     Dates: start: 20120522, end: 20120522
  3. ACETAMINOPHEN [Suspect]
     Dosage: UNK
  4. LYRICA [Suspect]
     Dosage: UNK
  5. PANTOPRAZOLE SODIUM [Suspect]
     Dosage: UNK
  6. ATARAX [Suspect]
     Dosage: 1 DF, SINGLE
     Dates: start: 20120626, end: 20120626
  7. PLAVIX [Suspect]
     Dosage: UNK
  8. LOPRESSOR [Suspect]
     Dosage: UNK

REACTIONS (1)
  - PANCREATITIS ACUTE [None]
